FAERS Safety Report 7395698-2 (Version None)
Quarter: 2011Q2

REPORT INFORMATION
  Report Type: 
  Country: None (occurrence: None)
  Receive Date: 20110405
  Receipt Date: 20101228
  Transmission Date: 20111010
  Serious: No
  Sender: FDA-Public Use
  Company Number: US-BAYER-2011-024848

PATIENT
  Sex: Female
  Weight: 71 kg

DRUGS (1)
  1. ONE A DAY WOMEN'S ACTIVE METABOLISM [Suspect]
     Indication: VITAMIN SUPPLEMENTATION

REACTIONS (4)
  - VOMITING [None]
  - MALAISE [None]
  - NERVOUSNESS [None]
  - NAUSEA [None]
